FAERS Safety Report 9180813 (Version 1)
Quarter: 2013Q1

REPORT INFORMATION
  Report Type: Spontaneous
  Country: AU (occurrence: None)
  Receive Date: 20130320
  Receipt Date: 20130320
  Transmission Date: 20140127
  Serious: Yes (Hospitalization)
  Sender: FDA-Public Use
  Company Number: IPC201303-000079

PATIENT
  Age: 65 Year
  Sex: Male

DRUGS (7)
  1. METFORMIN HYDROCHLORIDE [Suspect]
  2. TRANDOLAPRIL [Suspect]
  3. SPIRONOLACTONE [Suspect]
  4. INSULIN [Concomitant]
  5. ATENOLOL [Concomitant]
  6. FUROSEMIDE [Concomitant]
  7. WARFARIN [Concomitant]

REACTIONS (13)
  - Lactic acidosis [None]
  - Cardio-respiratory arrest [None]
  - Atrioventricular block complete [None]
  - Hyperkalaemia [None]
  - Hypothermia [None]
  - Anaemia [None]
  - Coagulopathy [None]
  - Renal failure acute [None]
  - Dyspnoea [None]
  - Melaena [None]
  - Hypoglycaemia [None]
  - Lethargy [None]
  - Cardiac failure [None]
